FAERS Safety Report 24372050 (Version 1)
Quarter: 2024Q3

REPORT INFORMATION
  Report Type: Spontaneous
  Country: US (occurrence: None)
  Receive Date: 20240925
  Receipt Date: 20240925
  Transmission Date: 20241016
  Serious: No
  Sender: Public
  Company Number: None

PATIENT
  Age: 31 Year
  Sex: Female

DRUGS (1)
  1. LISDEXAMFETAMINE [Suspect]
     Active Substance: LISDEXAMFETAMINE
     Indication: Attention deficit hyperactivity disorder
     Dosage: DAILY ORAL
     Route: 048
     Dates: start: 20240326, end: 20240520

REACTIONS (3)
  - Nausea [None]
  - Urticaria [None]
  - Paraesthesia [None]
